FAERS Safety Report 9027105 (Version 2)
Quarter: 2013Q1

REPORT INFORMATION
  Report Type: Spontaneous
  Country: US (occurrence: US)
  Receive Date: 20130123
  Receipt Date: 20130201
  Transmission Date: 20140127
  Serious: Yes (Death)
  Sender: FDA-Public Use
  Company Number: US-GILEAD-2013-0068120

PATIENT
  Age: 77 Year
  Sex: Male

DRUGS (10)
  1. LETAIRIS [Suspect]
     Indication: PULMONARY ARTERIAL HYPERTENSION
     Dosage: 10 MG, QD
     Route: 048
     Dates: start: 20100407
  2. LETAIRIS [Suspect]
     Indication: SYSTEMIC SCLEROSIS
     Dosage: 5 MG, QD
     Route: 048
     Dates: start: 201004, end: 201008
  3. TYVASO [Concomitant]
     Indication: PULMONARY ARTERIAL HYPERTENSION
  4. REVATIO [Concomitant]
     Indication: PULMONARY ARTERIAL HYPERTENSION
  5. TRAZODONE [Concomitant]
  6. ZOFRAN                             /00955301/ [Concomitant]
  7. WARFARIN [Concomitant]
  8. LASIX                              /00032601/ [Concomitant]
  9. METOLAZONE [Concomitant]
  10. MORPHINE [Concomitant]

REACTIONS (1)
  - Right ventricular failure [Fatal]
